FAERS Safety Report 6580073-0 (Version None)
Quarter: 2010Q1

REPORT INFORMATION
  Report Type: 
  Country: None (occurrence: None)
  Receive Date: 20100212
  Receipt Date: 20100201
  Transmission Date: 20100710
  Serious: Yes (Other)
  Sender: FDA-Public Use
  Company Number: JP-MERCK-1002USA00911

PATIENT
  Age: 95 Year
  Sex: Male

DRUGS (2)
  1. JANUVIA [Suspect]
     Indication: BLOOD GLUCOSE INCREASED
     Dosage: DIVIDED DOSE FREQUENCY U
     Route: 048
  2. GLIMICRON [Concomitant]
     Indication: BLOOD GLUCOSE INCREASED
     Route: 065

REACTIONS (1)
  - HYPOGLYCAEMIA [None]
